FAERS Safety Report 16874033 (Version 1)
Quarter: 2019Q4

REPORT INFORMATION
  Report Type: Spontaneous
  Country: CA (occurrence: CA)
  Receive Date: 20191001
  Receipt Date: 20191001
  Transmission Date: 20200122
  Serious: Yes (Hospitalization, Other)
  Sender: FDA-Public Use
  Company Number: CA-USP-000031

PATIENT
  Age: 86 Year

DRUGS (2)
  1. NITROGLYCERIN. [Suspect]
     Active Substance: NITROGLYCERIN
     Indication: CHEST PAIN
     Route: 065
  2. FLUTICASONE FUROATE,UMECLIDINIUM BROMIDE,VILANTEROL TRIFENATATE [Suspect]
     Active Substance: FLUTICASONE FUROATE\UMECLIDINIUM BROMIDE\VILANTEROL TRIFENATATE
     Indication: CHRONIC OBSTRUCTIVE PULMONARY DISEASE

REACTIONS (5)
  - Angina pectoris [Recovered/Resolved]
  - Overdose [Recovered/Resolved]
  - Chest pain [Recovered/Resolved]
  - Myocardial ischaemia [Recovered/Resolved]
  - Syncope [Recovered/Resolved]
